FAERS Safety Report 14529001 (Version 3)
Quarter: 2018Q1

REPORT INFORMATION
  Report Type: Spontaneous
  Country: US (occurrence: US)
  Receive Date: 20180214
  Receipt Date: 20180330
  Transmission Date: 20180509
  Serious: No
  Sender: FDA-Public Use
  Company Number: US-PFIZER INC-2018061622

PATIENT
  Age: 50 Year
  Sex: Female

DRUGS (2)
  1. EUCRISA [Suspect]
     Active Substance: CRISABOROLE
     Indication: DERMATITIS ATOPIC
  2. EUCRISA [Suspect]
     Active Substance: CRISABOROLE
     Indication: DERMATITIS ATOPIC
     Dosage: APPLIED TO FACE, NECK AND ARM PEA-SIZED AMOUNT TO AFFECTED AREA, 2X/DAY
     Route: 061
     Dates: start: 20180115, end: 20180131

REACTIONS (4)
  - Application site pain [Unknown]
  - Application site pustules [Unknown]
  - Application site erythema [Unknown]
  - Rash [Recovered/Resolved]

NARRATIVE: CASE EVENT DATE: 20180131
